FAERS Safety Report 5615147-1 (Version None)
Quarter: 2008Q1

REPORT INFORMATION
  Report Type: 
  Country: None (occurrence: None)
  Receive Date: 20080206
  Receipt Date: 20070820
  Transmission Date: 20080703
  Serious: No
  Sender: FDA-Public Use
  Company Number: A0673076A

PATIENT

DRUGS (1)
  1. ARIXTRA [Suspect]
     Dosage: 2.5MG TWICE PER DAY
     Route: 058
     Dates: start: 20070801

REACTIONS (1)
  - INJECTION SITE RASH [None]
